FAERS Safety Report 5768493 (Version 2)
Quarter: 2013Q1

REPORT INFORMATION
  Report Type: Spontaneous
  Country: US (occurrence: US)
  Receive Date: 20050331
  Receipt Date: 20130321
  Transmission Date: 20140127
  Serious: Yes (Other)
  Sender: FDA-Public Use
  Company Number: US-JNJFOC-20050305743

PATIENT
  Sex: Female

DRUGS (1)
  1. IBUPROFEN [Suspect]
     Indication: PRODUCT USED FOR UNKNOWN INDICATION
     Dosage: UNKNOWN
     Route: 048

REACTIONS (1)
  - Thrombosis [Unknown]
